FAERS Safety Report 8355608-8 (Version None)
Quarter: 2012Q2

REPORT INFORMATION
  Report Type: 
  Country: None (occurrence: None)
  Receive Date: 20120514
  Receipt Date: 20120503
  Transmission Date: 20120825
  Serious: Yes (Hospitalization)
  Sender: FDA-Public Use
  Company Number: US-BIOGENIDEC-2011BI048979

PATIENT
  Age: 57 Year
  Sex: Male

DRUGS (2)
  1. TYSABRI [Suspect]
     Indication: MULTIPLE SCLEROSIS
     Route: 042
     Dates: start: 20050223, end: 20050223
  2. TYSABRI [Suspect]
     Route: 042
     Dates: start: 20061023

REACTIONS (6)
  - BLADDER DYSFUNCTION [None]
  - ASTHENIA [None]
  - DYSURIA [None]
  - MYOCARDIAL INFARCTION [None]
  - PNEUMONIA [None]
  - URINARY TRACT INFECTION [None]
